FAERS Safety Report 18536766 (Version 1)
Quarter: 2020Q4

REPORT INFORMATION
  Report Type: Spontaneous
  Country: RO (occurrence: RO)
  Receive Date: 20201124
  Receipt Date: 20201124
  Transmission Date: 20210114
  Serious: Yes (Other)
  Sender: FDA-Public Use
  Company Number: RO-ABBVIE-20K-135-3657726-00

PATIENT
  Age: 38 Year
  Sex: Female

DRUGS (7)
  1. AZATHIOPRINE. [Suspect]
     Active Substance: AZATHIOPRINE
     Indication: PRODUCT USED FOR UNKNOWN INDICATION
     Dosage: 2.5 MG/KG REMISSION
     Route: 065
     Dates: start: 2009
  2. MESALAZINE [Suspect]
     Active Substance: MESALAMINE
     Indication: PRODUCT USED FOR UNKNOWN INDICATION
     Route: 065
     Dates: start: 2009
  3. AZATHIOPRINE. [Suspect]
     Active Substance: AZATHIOPRINE
     Dosage: 2.5 MG/KG
     Route: 065
     Dates: start: 2010
  4. ADALIMUMAB [Suspect]
     Active Substance: ADALIMUMAB
     Indication: PRODUCT USED FOR UNKNOWN INDICATION
     Route: 058
  5. MODULEN IBD [Suspect]
     Active Substance: CARBOHYDRATES\FATTY ACIDS\MINERALS\PROTEIN\VITAMINS
     Indication: PRODUCT USED FOR UNKNOWN INDICATION
     Route: 065
  6. CLEXANE [Suspect]
     Active Substance: ENOXAPARIN SODIUM
     Indication: PRODUCT USED FOR UNKNOWN INDICATION
     Route: 058
  7. AZATHIOPRINE. [Suspect]
     Active Substance: AZATHIOPRINE
     Dosage: 2.5 MG/KG
     Route: 065
     Dates: start: 201008

REACTIONS (6)
  - Defaecation disorder [Unknown]
  - Weight decreased [Unknown]
  - Abdominal pain [Unknown]
  - Haematochezia [Unknown]
  - Condition aggravated [Unknown]
  - Drug ineffective [Unknown]
